FAERS Safety Report 23471289 (Version 1)
Quarter: 2024Q1

REPORT INFORMATION
  Report Type: Spontaneous
  Country: US (occurrence: US)
  Receive Date: 20240202
  Receipt Date: 20240202
  Transmission Date: 20240410
  Serious: Yes (Hospitalization)
  Sender: FDA-Public Use
  Company Number: US-JNJFOC-20240168464

PATIENT
  Age: 37 Year
  Sex: Male

DRUGS (2)
  1. PSEUDOEPHEDRINE HYDROCHLORIDE [Suspect]
     Active Substance: PSEUDOEPHEDRINE HYDROCHLORIDE
     Indication: Painful erection
     Dosage: TOOK A TOTAL OF 8 PILLS OF PSEUDOEPHEDRINE 30MG IN THE SPAN OF SIX HOURS
     Route: 065
  2. SILDENAFIL [Concomitant]
     Active Substance: SILDENAFIL
     Indication: Painful erection
     Route: 065

REACTIONS (5)
  - Troponin I increased [Recovered/Resolved]
  - Off label use [Unknown]
  - Chest pain [Unknown]
  - Dyspnoea exertional [Unknown]
  - Palpitations [Unknown]
